FAERS Safety Report 4814556-8 (Version None)
Quarter: 2005Q4

REPORT INFORMATION
  Report Type: 
  Country: None (occurrence: None)
  Receive Date: 20051028
  Receipt Date: 20041208
  Transmission Date: 20060501
  Serious: No
  Sender: FDA-Public Use
  Company Number: US-GLAXOSMITHKLINE-A0536603A

PATIENT
  Age: 64 Year
  Sex: Male

DRUGS (6)
  1. ADVAIR DISKUS 100/50 [Suspect]
     Dosage: 1PUFF TWICE PER DAY
     Route: 055
     Dates: start: 20041203, end: 20041207
  2. PREDNISONE [Concomitant]
  3. HYDROCODONE [Concomitant]
  4. PLAVIX [Concomitant]
  5. ZESTRIL [Concomitant]
  6. LOPRESSOR [Concomitant]

REACTIONS (4)
  - COUGH [None]
  - DYSPHONIA [None]
  - GLOSSODYNIA [None]
  - SWOLLEN TONGUE [None]
